FAERS Safety Report 7282946-2 (Version None)
Quarter: 2011Q1

REPORT INFORMATION
  Report Type: 
  Country: None (occurrence: None)
  Receive Date: 20110209
  Receipt Date: 20110204
  Transmission Date: 20110831
  Serious: Yes (Other)
  Sender: FDA-Public Use
  Company Number: GB-PFIZER INC-2011026760

PATIENT
  Age: 29 Year
  Sex: Female

DRUGS (1)
  1. PHENYTOIN [Suspect]
     Dosage: UNK

REACTIONS (3)
  - ATAXIA [None]
  - TOXICITY TO VARIOUS AGENTS [None]
  - MYOCLONIC EPILEPSY [None]
